FAERS Safety Report 12912374 (Version 1)
Quarter: 2016Q4

REPORT INFORMATION
  Report Type: Spontaneous
  Country: FR (occurrence: FR)
  Receive Date: 20161104
  Receipt Date: 20161104
  Transmission Date: 20170207
  Serious: Yes (Death, Hospitalization, Other)
  Sender: FDA-Public Use
  Company Number: FR-GLENMARK PHARMACEUTICALS INC, USA.-2016GMK024693

PATIENT
  Age: 75 Year
  Sex: Male

DRUGS (3)
  1. LAMOTRIGINE. [Suspect]
     Active Substance: LAMOTRIGINE
     Indication: GENERALISED TONIC-CLONIC SEIZURE
     Dosage: 25 MG, QD
     Route: 065
  2. LAMOTRIGINE. [Suspect]
     Active Substance: LAMOTRIGINE
     Dosage: 50 MG, QD AT DAY 16
     Route: 065
  3. LAMOTRIGINE. [Suspect]
     Active Substance: LAMOTRIGINE
     Dosage: 50 MG, QD AT DAY 30
     Route: 065

REACTIONS (7)
  - Hepatitis cholestatic [Unknown]
  - Septic shock [Fatal]
  - Multiple organ dysfunction syndrome [Unknown]
  - Pneumonia staphylococcal [Fatal]
  - Renal failure [Unknown]
  - Pancreatitis acute [Unknown]
  - Drug reaction with eosinophilia and systemic symptoms [Unknown]
